FAERS Safety Report 12159412 (Version 1)
Quarter: 2016Q1

REPORT INFORMATION
  Report Type: Spontaneous
  Country: US (occurrence: US)
  Receive Date: 20160308
  Receipt Date: 20160308
  Transmission Date: 20160526
  Serious: Yes (Life-Threatening, Hospitalization)
  Sender: FDA-Public Use
  Company Number: US-SA-2016SA017445

PATIENT
  Age: 57 Year
  Sex: Female
  Weight: 77.11 kg

DRUGS (6)
  1. ROBITUSSIN AC ^ROBINS^ [Concomitant]
  2. EPIPEN [Concomitant]
     Active Substance: EPINEPHRINE
  3. AUVI-Q [Suspect]
     Active Substance: EPINEPHRINE
     Indication: ALLERGY TO ARTHROPOD STING
     Route: 065
     Dates: start: 20150816, end: 20150816
  4. CLONAZEPAM. [Concomitant]
     Active Substance: CLONAZEPAM
     Indication: SLEEP DISORDER
  5. CELEXA [Concomitant]
     Active Substance: CITALOPRAM HYDROBROMIDE
     Indication: ANXIETY
  6. FLONASE [Concomitant]
     Active Substance: FLUTICASONE PROPIONATE
     Dosage: ACTUATION NASAL SPRAY

REACTIONS (13)
  - Tremor [Recovering/Resolving]
  - Pallor [Recovering/Resolving]
  - Dizziness [Recovering/Resolving]
  - Shock [Recovering/Resolving]
  - Discomfort [Recovering/Resolving]
  - Emotional distress [Recovering/Resolving]
  - Asthenia [Recovering/Resolving]
  - Feeling abnormal [Recovering/Resolving]
  - Hypersensitivity [Recovering/Resolving]
  - Panic attack [Recovering/Resolving]
  - Loss of consciousness [Recovering/Resolving]
  - Pain [Recovering/Resolving]
  - Unevaluable event [Recovering/Resolving]

NARRATIVE: CASE EVENT DATE: 201508
